FAERS Safety Report 18673868 (Version 1)
Quarter: 2020Q4

REPORT INFORMATION
  Report Type: Spontaneous
  Country: US (occurrence: US)
  Receive Date: 20201229
  Receipt Date: 20201229
  Transmission Date: 20210114
  Serious: No
  Sender: FDA-Public Use
  Company Number: US-ELI_LILLY_AND_COMPANY-US202012001096

PATIENT
  Age: 48 Year
  Sex: Female

DRUGS (8)
  1. BENADRYL [Concomitant]
     Active Substance: DIPHENHYDRAMINE HYDROCHLORIDE
     Indication: PRODUCT USED FOR UNKNOWN INDICATION
     Dates: start: 20201123, end: 20201130
  2. GREEN TEA [CAMELLIA SINENSIS] [Concomitant]
     Indication: PROPHYLAXIS
  3. BAMLANIVIMAB 700MG [Suspect]
     Active Substance: BAMLANIVIMAB
     Indication: COVID-19
     Dosage: 700 MG, SINGLE
     Route: 042
     Dates: start: 20201123, end: 20201123
  4. ZINC. [Concomitant]
     Active Substance: ZINC
     Indication: PROPHYLAXIS
     Dates: start: 20201123, end: 20201130
  5. TART CHERRY [Concomitant]
     Indication: PROPHYLAXIS
  6. VITAMIN D [COLECALCIFEROL] [Concomitant]
     Active Substance: CHOLECALCIFEROL
     Indication: PROPHYLAXIS
     Dates: start: 20201123, end: 20201130
  7. MANUKA HONEY [Concomitant]
     Indication: PROPHYLAXIS
  8. VITAMIN C [Concomitant]
     Active Substance: ASCORBIC ACID
     Indication: PROPHYLAXIS
     Dates: start: 20201123, end: 20201130

REACTIONS (5)
  - Musculoskeletal chest pain [Recovered/Resolved]
  - Ageusia [Unknown]
  - Back pain [Recovered/Resolved]
  - Anosmia [Recovering/Resolving]
  - Arthralgia [Recovered/Resolved]

NARRATIVE: CASE EVENT DATE: 20201123
